FAERS Safety Report 20073478 (Version 3)
Quarter: 2022Q1

REPORT INFORMATION
  Report Type: Spontaneous
  Country: US (occurrence: US)
  Receive Date: 20211116
  Receipt Date: 20220113
  Transmission Date: 20220423
  Serious: Yes (Other)
  Sender: FDA-Public Use
  Company Number: US-SA-SAC20211112000909

PATIENT
  Age: 13 Year
  Sex: Male
  Weight: 79.37 kg

DRUGS (20)
  1. FABRAZYME [Suspect]
     Active Substance: AGALSIDASE BETA
     Indication: Fabry^s disease
     Dosage: 80 MG, QOW
     Route: 042
     Dates: start: 20150423
  2. FABRAZYME [Suspect]
     Active Substance: AGALSIDASE BETA
     Indication: Lipidosis
  3. AMOXICILLIN\CLAVULANATE POTASSIUM [Concomitant]
     Active Substance: AMOXICILLIN\CLAVULANATE POTASSIUM
     Dosage: UNK
  4. CORTISPORIN-TC [Concomitant]
     Active Substance: COLISTIN SULFATE\HYDROCORTISONE ACETATE\NEOMYCIN SULFATE\THONZONIUM BROMIDE
     Dosage: UNK
  5. ACETAMINOPHEN [Concomitant]
     Active Substance: ACETAMINOPHEN
     Dosage: UNK
  6. DIPHENHYDRAMINE [Concomitant]
     Active Substance: DIPHENHYDRAMINE
     Dosage: UNK
  7. STERILE WATER [Concomitant]
     Active Substance: WATER
     Dosage: UNK
  8. EPINEPHRINE [Concomitant]
     Active Substance: EPINEPHRINE
     Dosage: UNK
  9. SOLU-MEDROL [Concomitant]
     Active Substance: METHYLPREDNISOLONE SODIUM SUCCINATE
     Dosage: UNK
  10. IBUPROFEN [Concomitant]
     Active Substance: IBUPROFEN
     Dosage: UNK
  11. VITAMIN D3 [Concomitant]
     Active Substance: CHOLECALCIFEROL
     Dosage: UNK
  12. CLARITIN [Concomitant]
     Active Substance: LORATADINE
     Dosage: UNK
  13. MEDROL [Concomitant]
     Active Substance: METHYLPREDNISOLONE
     Dosage: UNK
  14. MEDROL [Concomitant]
     Active Substance: METHYLPREDNISOLONE
  15. LIDOCAINE [Concomitant]
     Active Substance: LIDOCAINE
  16. MOMETASONE FUROATE [Concomitant]
     Active Substance: MOMETASONE FUROATE
  17. LEVALBUTEROL TARTRATE [Concomitant]
     Active Substance: LEVALBUTEROL TARTRATE
  18. VITAMIN C [Concomitant]
     Active Substance: ASCORBIC ACID
  19. FISH OIL [Concomitant]
     Active Substance: FISH OIL
  20. VITAMINS NOS [Concomitant]
     Active Substance: VITAMINS

REACTIONS (4)
  - Neuropathy peripheral [Unknown]
  - Contusion [Unknown]
  - Ligament sprain [Unknown]
  - Fatigue [Unknown]

NARRATIVE: CASE EVENT DATE: 20220105
